FAERS Safety Report 9920747 (Version 1)
Quarter: 2014Q1

REPORT INFORMATION
  Report Type: Spontaneous
  Country: US (occurrence: US)
  Receive Date: 20140224
  Receipt Date: 20140224
  Transmission Date: 20141002
  Serious: Yes (Other)
  Sender: FDA-Public Use
  Company Number: US-GILEAD-2014-0094764

PATIENT
  Sex: Male

DRUGS (6)
  1. SOVALDI [Suspect]
     Indication: CHRONIC HEPATITIS C
     Dosage: 400 MG, UNK
     Route: 065
     Dates: start: 20140204
  2. RIBAVIRIN [Concomitant]
     Indication: CHRONIC HEPATITIS C
  3. LOSARTAN [Concomitant]
  4. CLOPIDOGREL [Concomitant]
  5. METOPROLOL [Concomitant]
  6. HYDROCHLOROTHIAZIDE [Concomitant]

REACTIONS (4)
  - Thrombosis [Unknown]
  - Erythema [Unknown]
  - Local swelling [Unknown]
  - Back pain [Unknown]
